FAERS Safety Report 13267139 (Version 2)
Quarter: 2017Q1

REPORT INFORMATION
  Report Type: Report from Study
  Country: US (occurrence: US)
  Receive Date: 20170224
  Receipt Date: 20170308
  Transmission Date: 20170428
  Serious: Yes (Other)
  Sender: FDA-Public Use
  Company Number: US-ASTRAZENECA-2016SF06415

PATIENT
  Sex: Female

DRUGS (14)
  1. AMLODIPINE [Concomitant]
     Active Substance: AMLODIPINE BESYLATE
     Route: 048
  2. LYNPARZA [Suspect]
     Active Substance: OLAPARIB
     Indication: OVARIAN CANCER
     Route: 048
  3. CARAFATE [Concomitant]
     Active Substance: SUCRALFATE
     Route: 048
  4. TESSALON [Concomitant]
     Active Substance: BENZONATATE
     Route: 048
  5. AMITIZA [Concomitant]
     Active Substance: LUBIPROSTONE
     Route: 048
  6. BREO ELLIPTA [Concomitant]
     Active Substance: FLUTICASONE FUROATE\VILANTEROL TRIFENATATE
     Dosage: 200 UG-25UG/INH,DAILY
  7. KLOR-CON [Concomitant]
     Active Substance: POTASSIUM CHLORIDE
     Route: 048
  8. COMBIVENT RESPIMAT [Concomitant]
     Active Substance: ALBUTEROL SULFATE\IPRATROPIUM BROMIDE
     Dosage: CFC FREE 100 UG-20-UG/INH,2 INHALATIONS AS DIRECTED
     Route: 055
  9. FOLIC ACID. [Concomitant]
     Active Substance: FOLIC ACID
     Route: 048
  10. VITAMIN D2 [Concomitant]
     Active Substance: ERGOCALCIFEROL
     Dosage: 50,000 INT UNITS
     Route: 048
  11. VITAMIN B12 [Concomitant]
     Active Substance: CYANOCOBALAMIN
     Dosage: 1000 MEG TABLET, DAILY
     Route: 048
  12. BENAZEPRIL [Concomitant]
     Active Substance: BENAZEPRIL HYDROCHLORIDE
     Route: 048
  13. NEXIUM [Suspect]
     Active Substance: ESOMEPRAZOLE MAGNESIUM
     Route: 048
  14. PREDNISONE. [Concomitant]
     Active Substance: PREDNISONE
     Route: 048

REACTIONS (13)
  - Pulmonary congestion [Unknown]
  - Malignant neoplasm progression [Unknown]
  - Nausea [Unknown]
  - Pain [Unknown]
  - Metastases to lung [Unknown]
  - Fatigue [Unknown]
  - Dyspnoea [Unknown]
  - Thrombocytopenia [Unknown]
  - Intentional product misuse [Unknown]
  - Pain in extremity [Unknown]
  - Bronchitis [Unknown]
  - Abdominal tenderness [Unknown]
  - Abdominal pain lower [Unknown]
